FAERS Safety Report 8874739 (Version 1)
Quarter: 2012Q4

REPORT INFORMATION
  Report Type: 
  Country: US (occurrence: US)
  Receive Date: 20121031
  Receipt Date: 20121031
  Transmission Date: 20130627
  Serious: No
  Sender: FDA-Public Use
  Company Number: US-B.I. PHARMACEUTICALS,INC./RIDGEFIELD-2012-BP-26449BP

PATIENT
  Age: 75 Year
  Sex: Male
  Weight: 114 kg

DRUGS (9)
  1. COMBIVENT [Suspect]
     Indication: EMPHYSEMA
     Route: 055
     Dates: start: 20121022
  2. MUCOUS PILL [Concomitant]
     Indication: RHINORRHOEA
     Route: 048
  3. FISH OIL [Concomitant]
     Route: 048
  4. WALMART MULTI VITAMIN [Concomitant]
     Route: 048
  5. CRESTOR [Concomitant]
     Indication: BLOOD CHOLESTEROL INCREASED
     Route: 048
  6. BABY ASPIRIN [Concomitant]
     Indication: CARDIAC DISORDER
     Dosage: 81 mg
     Route: 048
  7. DALIRESP [Concomitant]
     Indication: ASTHMA
     Dosage: 500 mcg
     Route: 048
  8. DALIRESP [Concomitant]
     Indication: EMPHYSEMA
  9. GLIMEPIRIDE [Concomitant]
     Route: 048

REACTIONS (1)
  - Weight increased [Not Recovered/Not Resolved]
